FAERS Safety Report 25703842 (Version 1)
Quarter: 2025Q3

REPORT INFORMATION
  Report Type: Spontaneous
  Country: CH (occurrence: CH)
  Receive Date: 20250820
  Receipt Date: 20250820
  Transmission Date: 20251020
  Serious: Yes (Other)
  Sender: STRIDES
  Company Number: CH-STRIDES ARCOLAB LIMITED-2025SP010511

PATIENT
  Age: 70 Year
  Sex: Female

DRUGS (6)
  1. AMOXICILLIN [Suspect]
     Active Substance: AMOXICILLIN
     Indication: Encephalitis
     Route: 065
  2. AMOXICILLIN [Suspect]
     Active Substance: AMOXICILLIN
     Indication: Listeriosis
  3. PIPERACILLIN SODIUM\TAZOBACTAM SODIUM [Suspect]
     Active Substance: PIPERACILLIN SODIUM\TAZOBACTAM SODIUM
     Indication: Sepsis
     Route: 065
  4. PIPERACILLIN SODIUM\TAZOBACTAM SODIUM [Suspect]
     Active Substance: PIPERACILLIN SODIUM\TAZOBACTAM SODIUM
     Indication: Evidence based treatment
  5. GENTAMICIN [Suspect]
     Active Substance: GENTAMICIN
     Indication: Encephalitis
     Route: 065
  6. GENTAMICIN [Suspect]
     Active Substance: GENTAMICIN
     Indication: Listeriosis

REACTIONS (1)
  - Tubulointerstitial nephritis [Unknown]
